FAERS Safety Report 9775697 (Version 1)
Quarter: 2013Q4

REPORT INFORMATION
  Report Type: Spontaneous
  Country: US (occurrence: US)
  Receive Date: 20131220
  Receipt Date: 20131220
  Transmission Date: 20140711
  Serious: Yes (Other)
  Sender: FDA-Public Use
  Company Number: US-PFIZER INC-2013365134

PATIENT
  Age: 61 Year
  Sex: Male

DRUGS (2)
  1. MS CONTIN [Suspect]
     Indication: PAIN
     Dosage: UNK
     Route: 048
  2. DILAUDID [Suspect]
     Indication: PAIN
     Dosage: UNK
     Route: 042

REACTIONS (5)
  - Blood pressure increased [Unknown]
  - Feeling hot [Unknown]
  - Anxiety [Unknown]
  - Respiratory rate decreased [Unknown]
  - Drug ineffective [Unknown]
